FAERS Safety Report 12901105 (Version 6)
Quarter: 2017Q1

REPORT INFORMATION
  Report Type: Spontaneous
  Country: US (occurrence: US)
  Receive Date: 20161101
  Receipt Date: 20170210
  Transmission Date: 20170428
  Serious: Yes (Congenital Anomaly, Other)
  Sender: FDA-Public Use
  Company Number: PHEH2016US028072

PATIENT
  Sex: Male

DRUGS (2)
  1. ZOFRAN ODT [Suspect]
     Active Substance: ONDANSETRON HYDROCHLORIDE
     Indication: FOETAL EXPOSURE DURING PREGNANCY
     Route: 064
  2. ZOFRAN [Suspect]
     Active Substance: ONDANSETRON HYDROCHLORIDE
     Indication: FOETAL EXPOSURE DURING PREGNANCY
     Dosage: MOTHER^S DOSE: 08 MG, TID
     Route: 064

REACTIONS (22)
  - Foetal exposure during pregnancy [Unknown]
  - Wheezing [Unknown]
  - Otitis media chronic [Unknown]
  - Injury [Unknown]
  - Otitis externa [Unknown]
  - Bronchitis [Unknown]
  - Upper respiratory tract infection [Unknown]
  - Pharyngitis [Unknown]
  - Otitis media acute [Unknown]
  - Cough [Unknown]
  - Cleft lip [Unknown]
  - Eustachian tube dysfunction [Unknown]
  - Periodontitis [Unknown]
  - Supernumerary teeth [Unknown]
  - Otitis media [Unknown]
  - Conductive deafness [Unknown]
  - Ear pain [Unknown]
  - Gingival hypertrophy [Unknown]
  - Cleft palate [Unknown]
  - Tympanic membrane perforation [Unknown]
  - Rhinitis allergic [Unknown]
  - Conjunctivitis [Unknown]
